FAERS Safety Report 6402487-1 (Version None)
Quarter: 2009Q4

REPORT INFORMATION
  Report Type: 
  Country: None (occurrence: None)
  Receive Date: 20091015
  Receipt Date: 20091013
  Transmission Date: 20100525
  Serious: Yes (Death)
  Sender: FDA-Public Use
  Company Number: US-GILEAD-2009-0024599

PATIENT
  Sex: Female

DRUGS (15)
  1. LETAIRIS [Suspect]
     Indication: PULMONARY ARTERIAL HYPERTENSION
     Route: 048
     Dates: start: 20080325, end: 20091001
  2. DARVOCET-N 100 [Concomitant]
  3. ATIVAN [Concomitant]
  4. ACULAR LS [Concomitant]
  5. LOMOTIL [Concomitant]
  6. LASIX [Concomitant]
  7. ZYRTEC [Concomitant]
  8. REVATIO [Concomitant]
  9. GABAPENTIN [Concomitant]
  10. METOLAZONE [Concomitant]
  11. GLYBURIDE [Concomitant]
  12. KLOR-CON M20 [Concomitant]
  13. FIORICET [Concomitant]
  14. PREVACID [Concomitant]
  15. MICARDIS [Concomitant]

REACTIONS (1)
  - CARDIAC FAILURE CONGESTIVE [None]
